FAERS Safety Report 17893027 (Version 2)
Quarter: 2020Q3

REPORT INFORMATION
  Report Type: Report from Study
  Country: IL (occurrence: IL)
  Receive Date: 20200613
  Receipt Date: 20200615
  Transmission Date: 20201104
  Serious: Yes (Life-Threatening, Hospitalization)
  Sender: FDA-Public Use
  Company Number: NVSC2020IL160073

PATIENT
  Age: 63 Year
  Sex: Female
  Weight: 70.5 kg

DRUGS (12)
  1. INC280 [Suspect]
     Active Substance: CAPMATINIB
     Dosage: 0 MG, BID
     Route: 048
     Dates: start: 20200519, end: 20200607
  2. LORIVAN [Concomitant]
     Active Substance: LORAZEPAM
     Indication: NAUSEA
  3. XARELTO [Concomitant]
     Active Substance: RIVAROXABAN
     Indication: VENOUS THROMBOSIS
     Dosage: UNK
     Route: 065
     Dates: start: 20200403
  4. FOSAVANCE [Concomitant]
     Active Substance: ALENDRONATE SODIUM\CHOLECALCIFEROL
     Indication: OSTEOPOROSIS
     Dosage: UNK
     Route: 065
     Dates: start: 20200321
  5. OMEPRADEX [Concomitant]
     Active Substance: OMEPRAZOLE
     Indication: HEPATIC ENZYME INCREASED
     Dosage: UNK
     Route: 065
     Dates: start: 20200518
  6. INC280 [Suspect]
     Active Substance: CAPMATINIB
     Indication: TRIPLE NEGATIVE BREAST CANCER
     Dosage: 200 MG, BID
     Route: 048
     Dates: start: 20200511, end: 20200517
  7. INC280 [Suspect]
     Active Substance: CAPMATINIB
     Dosage: 200 MG, BID
     Route: 048
     Dates: start: 20200518, end: 20200518
  8. OXYCODONE HYDROCHLORIDE. [Concomitant]
     Active Substance: OXYCODONE HYDROCHLORIDE
     Indication: PAIN
     Dosage: UNK
     Route: 065
     Dates: start: 20190101
  9. LORIVAN [Concomitant]
     Active Substance: LORAZEPAM
     Indication: VOMITING
     Dosage: UNK
     Route: 065
     Dates: start: 20200518, end: 20200527
  10. PREDNISONE. [Concomitant]
     Active Substance: PREDNISONE
     Indication: HEPATIC ENZYME INCREASED
     Dosage: UNK
     Route: 065
     Dates: start: 20200518
  11. LAG525 [Suspect]
     Active Substance: IERAMILIMAB
     Indication: TRIPLE NEGATIVE BREAST CANCER
     Dosage: 600 MG, Q4W
     Route: 042
     Dates: start: 20200511, end: 20200511
  12. PDR001 [Suspect]
     Active Substance: SPARTALIZUMAB
     Indication: TRIPLE NEGATIVE BREAST CANCER
     Dosage: 400 MG, Q4W
     Route: 042
     Dates: start: 20200511, end: 20200511

REACTIONS (1)
  - Hepatic enzyme increased [Not Recovered/Not Resolved]

NARRATIVE: CASE EVENT DATE: 20200607
